FAERS Safety Report 25134649 (Version 1)
Quarter: 2025Q1

REPORT INFORMATION
  Report Type: Report from Study
  Country: JP (occurrence: JP)
  Receive Date: 20250328
  Receipt Date: 20250328
  Transmission Date: 20250409
  Serious: Yes (Other)
  Sender: MYLAN
  Company Number: JP-MYLANLABS-2025M1025821

PATIENT
  Age: 13 Year

DRUGS (12)
  1. TACROLIMUS [Suspect]
     Active Substance: TACROLIMUS
     Indication: Optic neuritis
  2. TACROLIMUS [Suspect]
     Active Substance: TACROLIMUS
     Indication: Anti-aquaporin-4 antibody positive
  3. TACROLIMUS [Suspect]
     Active Substance: TACROLIMUS
     Indication: Neuromyelitis optica spectrum disorder
  4. PREDNISOLONE [Suspect]
     Active Substance: PREDNISOLONE
     Indication: Optic neuritis
  5. PREDNISOLONE [Suspect]
     Active Substance: PREDNISOLONE
     Indication: Anti-aquaporin-4 antibody positive
  6. PREDNISOLONE [Suspect]
     Active Substance: PREDNISOLONE
     Indication: Neuromyelitis optica spectrum disorder
  7. CYCLOSPORINE [Suspect]
     Active Substance: CYCLOSPORINE
     Indication: Optic neuritis
  8. CYCLOSPORINE [Suspect]
     Active Substance: CYCLOSPORINE
     Indication: Anti-aquaporin-4 antibody positive
  9. CYCLOSPORINE [Suspect]
     Active Substance: CYCLOSPORINE
     Indication: Neuromyelitis optica spectrum disorder
  10. SATRALIZUMAB [Suspect]
     Active Substance: SATRALIZUMAB
     Indication: Optic neuritis
  11. SATRALIZUMAB [Suspect]
     Active Substance: SATRALIZUMAB
     Indication: Anti-aquaporin-4 antibody positive
  12. SATRALIZUMAB [Suspect]
     Active Substance: SATRALIZUMAB
     Indication: Neuromyelitis optica spectrum disorder

REACTIONS (1)
  - Drug ineffective [Unknown]
